FAERS Safety Report 5030126-3 (Version None)
Quarter: 2006Q2

REPORT INFORMATION
  Report Type: 
  Country: None (occurrence: None)
  Receive Date: 20060614
  Receipt Date: 20060602
  Transmission Date: 20061013
  Serious: Yes (Hospitalization)
  Sender: FDA-Public Use
  Company Number: FR200606000967

PATIENT
  Age: 41 Year
  Sex: Female

DRUGS (5)
  1. ZYPREXA [Suspect]
     Indication: BIPOLAR DISORDER
     Dosage: 10 MG, DAILY (1/D), ORAL
     Route: 048
     Dates: start: 20060201, end: 20060501
  2. RIVOTRIL /NOR/ (CLONAZEPAM) [Concomitant]
  3. TERCIAN (CYAMEMAZINE) [Concomitant]
  4. TEGRETOL [Concomitant]
  5. SULFARLEM (ANETHOLE TRITHIONE) [Concomitant]

REACTIONS (4)
  - CHEST PAIN [None]
  - DYSPNOEA [None]
  - HAEMOPTYSIS [None]
  - PULMONARY EMBOLISM [None]
